FAERS Safety Report 14297356 (Version 1)
Quarter: 2017Q4

REPORT INFORMATION
  Report Type: Spontaneous
  Country: FR (occurrence: FR)
  Receive Date: 20171218
  Receipt Date: 20171218
  Transmission Date: 20180321
  Serious: Yes (Other)
  Sender: FDA-Public Use
  Company Number: FR-PFIZER INC-2017530289

PATIENT
  Sex: Female

DRUGS (2)
  1. XELODA [Concomitant]
     Active Substance: CAPECITABINE
     Dosage: UNK
     Route: 048
  2. FRAGMINE [Suspect]
     Active Substance: DALTEPARIN SODIUM
     Dosage: UNK
     Dates: start: 201711

REACTIONS (1)
  - Cerebral venous thrombosis [Unknown]
